FAERS Safety Report 20171296 (Version 2)
Quarter: 2022Q2

REPORT INFORMATION
  Report Type: Spontaneous
  Country: US (occurrence: US)
  Receive Date: 20211210
  Receipt Date: 20220414
  Transmission Date: 20220721
  Serious: No
  Sender: FDA-Public Use
  Company Number: US-PFIZER INC-202101198835

PATIENT
  Age: 63 Year
  Sex: Female

DRUGS (2)
  1. IBRANCE [Suspect]
     Active Substance: PALBOCICLIB
     Indication: Breast cancer female
     Dosage: 75 MG, CYCLIC, (1 TABLET BY MOUTH DAILY ON DAYS 1-21 THEN 7 DAYS OFF)
     Route: 048
     Dates: start: 20210819
  2. IBRANCE [Suspect]
     Active Substance: PALBOCICLIB
     Dosage: 75 MG, CYCLIC, (1 TABLET BY MOUTH DAILY ON DAYS 1-21 THEN 7 DAYS OFF)
     Route: 048
     Dates: start: 20210820

REACTIONS (4)
  - Circumstance or information capable of leading to medication error [Unknown]
  - Pain [Not Recovered/Not Resolved]
  - Insomnia [Not Recovered/Not Resolved]
  - Dyspepsia [Not Recovered/Not Resolved]
